APPROVED DRUG PRODUCT: ATORVASTATIN CALCIUM
Active Ingredient: ATORVASTATIN CALCIUM
Strength: EQ 80MG BASE
Dosage Form/Route: TABLET;ORAL
Application: A209288 | Product #004 | TE Code: AB
Applicant: ALKEM LABORATORIES LTD
Approved: Dec 21, 2018 | RLD: No | RS: No | Type: RX